FAERS Safety Report 15429318 (Version 2)
Quarter: 2018Q4

REPORT INFORMATION
  Report Type: Report from Study
  Country: CA (occurrence: CA)
  Receive Date: 20180926
  Receipt Date: 20181002
  Transmission Date: 20190204
  Serious: Yes (Other)
  Sender: FDA-Public Use
  Company Number: CA-GLAXOSMITHKLINE-CA2018GSK172683

PATIENT
  Sex: Female

DRUGS (1)
  1. MEPOLIZUMAB [Suspect]
     Active Substance: MEPOLIZUMAB
     Indication: ASTHMA
     Dosage: 100 MG, Z (MONTHLY)
     Route: 042

REACTIONS (8)
  - Sputum discoloured [Unknown]
  - Headache [Unknown]
  - Chest discomfort [Unknown]
  - Productive cough [Unknown]
  - Dyspnoea [Unknown]
  - Kidney infection [Unknown]
  - Micturition disorder [Recovered/Resolved]
  - Pain [Recovered/Resolved]
